FAERS Safety Report 18466288 (Version 1)
Quarter: 2020Q4

REPORT INFORMATION
  Report Type: Spontaneous
  Country: CN (occurrence: CN)
  Receive Date: 20201105
  Receipt Date: 20201105
  Transmission Date: 20210114
  Serious: Yes (Other)
  Sender: FDA-Public Use
  Company Number: CN-BAXTER-2020BAX022290

PATIENT
  Age: 52 Year
  Sex: Female
  Weight: 65 kg

DRUGS (4)
  1. TAXOTERE [Suspect]
     Active Substance: DOCETAXEL
     Indication: BREAST CANCER FEMALE
     Dosage: FIRST CHEMOTHERAPY, DOCETAXEL INJECTION 125 MG + SODIUM CHLORIDE 250 ML,
     Route: 041
     Dates: start: 20200903, end: 20200903
  2. 0.9% SODIUM CHLORIDE INJECTION [Suspect]
     Active Substance: SODIUM CHLORIDE
     Dosage: FIRST CHEMOTHERAPY, DOCETAXEL INJECTION 125 MG + SODIUM CHLORIDE 250 ML
     Route: 041
     Dates: start: 20200903, end: 20200903
  3. ENDOXAN [Suspect]
     Active Substance: CYCLOPHOSPHAMIDE
     Indication: BREAST CANCER FEMALE
     Dosage: FIRST CHEMOTHERAPY, CYCLOPHOSPHAMIDE FOR INJECTION 1000 MG + SODIUM CHLORIDE 50 ML
     Route: 042
     Dates: start: 20200903, end: 20200903
  4. 0.9% SODIUM CHLORIDE INJECTION [Suspect]
     Active Substance: SODIUM CHLORIDE
     Indication: MEDICATION DILUTION
     Dosage: FIRST CHEMOTHERAPY, CYCLOPHOSPHAMIDE FOR INJECTION 1000 MG + SODIUM CHLORIDE 50 ML;
     Route: 042
     Dates: start: 20200903, end: 20200903

REACTIONS (1)
  - Agranulocytosis [Recovering/Resolving]

NARRATIVE: CASE EVENT DATE: 20200909
